FAERS Safety Report 9706486 (Version 2)
Quarter: 2013Q4

REPORT INFORMATION
  Report Type: Spontaneous
  Country: US (occurrence: US)
  Receive Date: 20131125
  Receipt Date: 20131125
  Transmission Date: 20140711
  Serious: Yes (Life-Threatening)
  Sender: FDA-Public Use
  Company Number: US-DRREDDYS-USA/USA/13/0035727

PATIENT
  Age: 65 Year
  Sex: Male

DRUGS (1)
  1. FEXOFENADINE HCL OTC [Suspect]
     Indication: SEASONAL ALLERGY
     Route: 048
     Dates: start: 20131119

REACTIONS (1)
  - Anaphylactic shock [Recovered/Resolved]
